FAERS Safety Report 16460981 (Version 4)
Quarter: 2019Q3

REPORT INFORMATION
  Report Type: Report from Study
  Country: DE (occurrence: DE)
  Receive Date: 20190620
  Receipt Date: 20190718
  Transmission Date: 20191004
  Serious: Yes (Other)
  Sender: FDA-Public Use
  Company Number: PHHY2019DE138764

PATIENT
  Sex: Female
  Weight: 65 kg

DRUGS (5)
  1. KISQALI [Suspect]
     Active Substance: RIBOCICLIB
     Indication: BREAST CANCER METASTATIC
     Dosage: 600 MG, DAILY (21 DAYS INTAKE, 7 DAYS PAUSE)
     Route: 048
     Dates: start: 20190409, end: 20190507
  2. KISQALI [Suspect]
     Active Substance: RIBOCICLIB
     Dosage: 400 MG, QD (21 DAYS INTAKE, 7 DAYS PAUSE)
     Route: 048
     Dates: start: 20190709
  3. PALLADON [Suspect]
     Active Substance: HYDROMORPHONE
     Indication: PRODUCT USED FOR UNKNOWN INDICATION
     Dosage: 4 MG, BID (1/2 - 0 - 1)
     Route: 065
     Dates: start: 20190410
  4. LETROZOLE. [Suspect]
     Active Substance: LETROZOLE
     Indication: BREAST CANCER METASTATIC
     Dosage: 2.5 MG, QD
     Route: 048
     Dates: start: 20190409
  5. KISQALI [Suspect]
     Active Substance: RIBOCICLIB
     Dosage: 600 MG, (DAILY DOSE) (21 DAYS INTAKE, 7 DAYS PAUSE)
     Route: 048
     Dates: start: 20190516, end: 20190630

REACTIONS (3)
  - Neutrophil count decreased [Recovered/Resolved]
  - Fatigue [Recovering/Resolving]
  - Neutrophil count decreased [Unknown]

NARRATIVE: CASE EVENT DATE: 20190410
